FAERS Safety Report 17914355 (Version 1)
Quarter: 2020Q2

REPORT INFORMATION
  Report Type: Spontaneous
  Country: FR (occurrence: FR)
  Receive Date: 20200619
  Receipt Date: 20200619
  Transmission Date: 20200714
  Serious: Yes (Life-Threatening)
  Sender: FDA-Public Use
  Company Number: FR-PFIZER INC-2020235483

PATIENT
  Age: 67 Year
  Sex: Female
  Weight: 49 kg

DRUGS (3)
  1. CELLCEPT [Suspect]
     Active Substance: MYCOPHENOLATE MOFETIL\MYCOPHENOLATE MOFETIL HYDROCHLORIDE
     Indication: MYOCARDITIS
     Dosage: 2 G, 1X/DAY
     Route: 048
     Dates: start: 20200228, end: 20200330
  2. SOLU-MEDROL [Suspect]
     Active Substance: METHYLPREDNISOLONE SODIUM SUCCINATE
     Indication: MYOCARDITIS
     Dosage: UNK
     Route: 041
     Dates: start: 20200213
  3. ORENCIA [Suspect]
     Active Substance: ABATACEPT
     Indication: MYOCARDITIS
     Dosage: 40 MG/KG, MONTHLY
     Route: 058
     Dates: start: 20200213, end: 20200514

REACTIONS (3)
  - Anaemia [Unknown]
  - Pneumocystis jirovecii pneumonia [Unknown]
  - Sepsis [Recovered/Resolved]

NARRATIVE: CASE EVENT DATE: 202003
